FAERS Safety Report 22149275 (Version 1)
Quarter: 2023Q1

REPORT INFORMATION
  Report Type: Spontaneous
  Country: US (occurrence: US)
  Receive Date: 20230329
  Receipt Date: 20230329
  Transmission Date: 20230418
  Serious: No
  Sender: FDA-Public Use
  Company Number: US-drreddys-SPO/USA/23/0160617

PATIENT
  Age: 24 Year

DRUGS (2)
  1. ACCUTANE [Suspect]
     Active Substance: ISOTRETINOIN
     Indication: Acne
     Dosage: RMA ISSUE DATES: 02 AUGUST 2022, 10:51:33 AM, 13 OCTOBER 2022, 04:18:48 PM, 23 DECEMBER 2022, 01:21:
  2. ACCUTANE [Suspect]
     Active Substance: ISOTRETINOIN
     Dosage: RMA ISSUE DATES:16 NOVEMBER 2022, 10:20:14 AM

REACTIONS (1)
  - Dry eye [Unknown]
